FAERS Safety Report 6640131-9 (Version None)
Quarter: 2010Q1

REPORT INFORMATION
  Report Type: 
  Country: None (occurrence: None)
  Receive Date: 20100318
  Receipt Date: 20100305
  Transmission Date: 20100710
  Serious: Yes (Hospitalization)
  Sender: FDA-Public Use
  Company Number: JP-ROCHE-685769

PATIENT
  Sex: Male
  Weight: 51 kg

DRUGS (13)
  1. XELODA [Suspect]
     Indication: COLON CANCER METASTATIC
     Dosage: NOTE: 3 WEEKS ADMINISTRATION FOLLOWED BY 1 WEEK REST.
     Route: 048
     Dates: start: 20090911, end: 20091001
  2. XELODA [Suspect]
     Dosage: NOTE: 3 WEEKS ADMINISTRATION FOLLOWED BY 1 WEEK REST
     Route: 048
     Dates: start: 20091009, end: 20091029
  3. XELODA [Suspect]
     Dosage: NOTE: 3 WEEKS ADMINISTRATION FOLLOWED BY 1 WEEK REST.
     Route: 048
     Dates: start: 20091106, end: 20091126
  4. XELODA [Suspect]
     Dosage: NOTE: 3 WEEKS ADMINISTRATION FOLLOWED BY 1 WEEK REST.
     Route: 048
     Dates: start: 20091204, end: 20091224
  5. XELODA [Suspect]
     Dosage: NOTE: 3 WEEKS ADMINISTRATION FOLLOWED BY 1 WEEK REST.
     Route: 048
     Dates: start: 20100101, end: 20100110
  6. VITAMEDIN [Concomitant]
     Route: 048
     Dates: start: 20070406
  7. ONON [Concomitant]
     Route: 048
     Dates: start: 20071019
  8. ASTOMIN [Concomitant]
     Route: 048
     Dates: start: 20071019
  9. MUCOSOLVAN [Concomitant]
     Route: 048
     Dates: start: 20071019
  10. CANDESARTAN CILEXETIL [Concomitant]
     Route: 048
     Dates: start: 20071019, end: 20090904
  11. ADALAT [Concomitant]
     Route: 048
     Dates: start: 20080903, end: 20090904
  12. PYDOXAL [Concomitant]
     Route: 048
     Dates: start: 20090911
  13. MUCOSTA [Concomitant]
     Route: 048
     Dates: start: 20090911

REACTIONS (6)
  - ANAEMIA [None]
  - DECREASED APPETITE [None]
  - GENERAL PHYSICAL HEALTH DETERIORATION [None]
  - LIP PAIN [None]
  - MALAISE [None]
  - PRURITUS [None]
